FAERS Safety Report 11916084 (Version 2)
Quarter: 2016Q1

REPORT INFORMATION
  Report Type: Spontaneous
  Country: US (occurrence: US)
  Receive Date: 20160114
  Receipt Date: 20160205
  Transmission Date: 20160526
  Serious: No
  Sender: FDA-Public Use
  Company Number: US-BIOGEN-2016BI00170402

PATIENT
  Age: 51 Year
  Sex: Female

DRUGS (2)
  1. AVONEX [Suspect]
     Active Substance: INTERFERON BETA-1A
     Indication: MULTIPLE SCLEROSIS
     Route: 030
     Dates: start: 20110111, end: 20110312
  2. AVONEX [Suspect]
     Active Substance: INTERFERON BETA-1A
     Dates: start: 19990101, end: 19990201

REACTIONS (16)
  - Myalgia [Unknown]
  - Dissociation [Recovered/Resolved]
  - Lymphadenopathy [Unknown]
  - Multiple sclerosis relapse [Recovered/Resolved]
  - Fatigue [Recovered/Resolved]
  - Ill-defined disorder [Recovered/Resolved]
  - Weight decreased [Unknown]
  - General physical health deterioration [Unknown]
  - Somnolence [Unknown]
  - Animal scratch [Recovered/Resolved]
  - Gingival swelling [Recovered/Resolved]
  - Pain [Recovered/Resolved]
  - Influenza like illness [Unknown]
  - Procedural anxiety [Unknown]
  - Apparent death [Unknown]
  - Feeling abnormal [Unknown]

NARRATIVE: CASE EVENT DATE: 20110201
